FAERS Safety Report 26052572 (Version 1)
Quarter: 2025Q4

REPORT INFORMATION
  Report Type: Spontaneous
  Country: US (occurrence: US)
  Receive Date: 20251117
  Receipt Date: 20251117
  Transmission Date: 20260118
  Serious: Yes (Hospitalization, Other)
  Sender: Onesource Specialty Pharma
  Company Number: US-STRIDES ARCOLAB LIMITED-2025OS001168

PATIENT
  Age: 29 Year
  Sex: Female

DRUGS (7)
  1. OMEGA-3-ACID ETHYL ESTERS [Suspect]
     Active Substance: OMEGA-3-ACID ETHYL ESTERS
     Indication: Hypertriglyceridaemia
     Dosage: 3000 MILLIGRAM, QD
     Route: 065
  2. FENOFIBRATE [Suspect]
     Active Substance: FENOFIBRATE
     Indication: Hypertriglyceridaemia
     Dosage: 160 MILLIGRAM, QD
     Route: 065
  3. INSULIN NOS [Suspect]
     Active Substance: INSULIN NOS
     Indication: Hypertriglyceridaemia
     Dosage: UNK
     Route: 042
  4. INSULIN NOS [Suspect]
     Active Substance: INSULIN NOS
     Dosage: 500 UNITS
     Route: 042
  5. DEXTROSE [Suspect]
     Active Substance: DEXTROSE MONOHYDRATE
     Indication: Hypertriglyceridaemia
     Dosage: 5G GLUCOSE PER 100ML FLUID
     Route: 042
  6. DEXTROSE [Suspect]
     Active Substance: DEXTROSE MONOHYDRATE
     Dosage: 10G GLUCOSE PER 100ML FLUID AT A MEDIAN RATE OF 70-90 CC/H
     Route: 042
  7. DEXTROSE [Suspect]
     Active Substance: DEXTROSE MONOHYDRATE
     Dosage: 10G GLUCOSE PER 100MLFLUID RATE OF 110 CC/H
     Route: 042

REACTIONS (4)
  - Pancreatitis relapsing [None]
  - Drug ineffective [Unknown]
  - Premature delivery [Unknown]
  - Maternal exposure during pregnancy [Unknown]
